FAERS Safety Report 5163803-4 (Version None)
Quarter: 2006Q4

REPORT INFORMATION
  Report Type: 
  Country: None (occurrence: None)
  Receive Date: 20061129
  Receipt Date: 20061129
  Transmission Date: 20070319
  Serious: Yes (Hospitalization, Other)
  Sender: FDA-Public Use
  Company Number: None

PATIENT
  Age: 83 Year
  Weight: 40.3701 kg

DRUGS (2)
  1. PHENERGAN [Suspect]
     Indication: NAUSEA
     Dosage: 12.5 MG INTRA-ARTER
     Route: 013
     Dates: start: 20060127, end: 20060127
  2. PHENERGAN [Suspect]
     Indication: VOMITING
     Dosage: 12.5 MG INTRA-ARTER
     Route: 013
     Dates: start: 20060127, end: 20060127

REACTIONS (5)
  - ARM AMPUTATION [None]
  - ARTERIAL SPASM [None]
  - GANGRENE [None]
  - INCORRECT ROUTE OF DRUG ADMINISTRATION [None]
  - POOR PERIPHERAL CIRCULATION [None]
